FAERS Safety Report 6370010-6 (Version None)
Quarter: 2009Q3

REPORT INFORMATION
  Report Type: 
  Country: None (occurrence: None)
  Receive Date: 20090923
  Receipt Date: 20070405
  Transmission Date: 20100115
  Serious: Yes (Hospitalization)
  Sender: FDA-Public Use
  Company Number: US-ASTRAZENECA-2006UW04548

PATIENT
  Age: 513 Month
  Sex: Female
  Weight: 108.9 kg

DRUGS (19)
  1. SEROQUEL [Suspect]
     Indication: INSOMNIA
     Dosage: 100-400 MG
     Route: 048
     Dates: start: 20011213
  2. SEROQUEL [Suspect]
     Indication: BIPOLAR DISORDER
     Dosage: 100-400 MG
     Route: 048
     Dates: start: 20011213
  3. SEROQUEL [Suspect]
     Indication: DEPRESSION
     Dosage: 100-400 MG
     Route: 048
     Dates: start: 20011213
  4. SEROQUEL [Suspect]
     Dosage: 100-200 MG
     Route: 048
     Dates: start: 20010101, end: 20050101
  5. SEROQUEL [Suspect]
     Dosage: 100-200 MG
     Route: 048
     Dates: start: 20010101, end: 20050101
  6. SEROQUEL [Suspect]
     Dosage: 100-200 MG
     Route: 048
     Dates: start: 20010101, end: 20050101
  7. ABILIFY [Suspect]
  8. ATIVAN [Concomitant]
  9. THORAZINE [Concomitant]
  10. COGENTIN [Concomitant]
  11. ADVIL [Concomitant]
  12. DOXEPIN HCL [Concomitant]
  13. PROTONIX [Concomitant]
  14. LITHIUM CARBONATE [Concomitant]
  15. LEXAPRO [Concomitant]
  16. VALIUM [Concomitant]
  17. BUSPAR [Concomitant]
  18. NEXIUM [Concomitant]
  19. PROVIGIL [Concomitant]

REACTIONS (11)
  - BLOOD CHOLESTEROL INCREASED [None]
  - BLOOD TRIGLYCERIDES INCREASED [None]
  - CHRONIC HEPATITIS [None]
  - DIABETES MELLITUS [None]
  - GLUCOSE TOLERANCE IMPAIRED [None]
  - GLYCOSURIA [None]
  - HYPERGLYCAEMIA [None]
  - HYPERLIPIDAEMIA [None]
  - IRON DEFICIENCY ANAEMIA [None]
  - OBESITY [None]
  - TYPE 2 DIABETES MELLITUS [None]
